FAERS Safety Report 7754310-0 (Version None)
Quarter: 2011Q3

REPORT INFORMATION
  Report Type: 
  Country: None (occurrence: None)
  Receive Date: 20110915
  Receipt Date: 20110902
  Transmission Date: 20111222
  Serious: Yes (Other)
  Sender: FDA-Public Use
  Company Number: CH-BAYER-2011-080371

PATIENT
  Sex: Female
  Weight: 2.66 kg

DRUGS (2)
  1. ASPIRIN [Suspect]
     Dosage: 100 MG, QD
     Route: 064
     Dates: start: 20110705, end: 20110801
  2. FRAXIPARINE [Suspect]
     Dosage: 0.4 MG, QD
     Route: 064
     Dates: start: 20110603, end: 20110801

REACTIONS (1)
  - FOETAL GROWTH RESTRICTION [None]
